FAERS Safety Report 4501400-1 (Version None)
Quarter: 2004Q4

REPORT INFORMATION
  Report Type: 
  Country: None (occurrence: None)
  Receive Date: 20040928
  Receipt Date: 20040823
  Transmission Date: 20050328
  Serious: No
  Sender: FDA-Public Use
  Company Number: 04P-163-0271192-00

PATIENT
  Age: 68 Year
  Sex: Female
  Weight: 77.1115 kg

DRUGS (6)
  1. HUMIRA [Suspect]
     Indication: RHEUMATOID ARTHRITIS
     Dosage: 40 MG 1 IN 2 WK SUBCUTANEOUS
     Route: 058
     Dates: start: 20040819
  2. GABAPENTIN [Concomitant]
  3. OXYCOCET [Concomitant]
  4. ALPRAZOLAM [Concomitant]
  5. PREDNISONE [Concomitant]
  6. METHOTREXATE [Concomitant]

REACTIONS (2)
  - ANXIETY [None]
  - INSOMNIA [None]
